FAERS Safety Report 6163782-7 (Version None)
Quarter: 2009Q2

REPORT INFORMATION
  Report Type: 
  Country: None (occurrence: None)
  Receive Date: 20090422
  Receipt Date: 20090415
  Transmission Date: 20091009
  Serious: Yes (Hospitalization)
  Sender: FDA-Public Use
  Company Number: JP-ABBOTT-09P-087-0500650-00

PATIENT
  Sex: Female
  Weight: 45 kg

DRUGS (6)
  1. CEFZON [Suspect]
     Indication: PYREXIA
     Route: 048
     Dates: start: 20090111, end: 20090113
  2. CEFAZOLIN [Suspect]
     Indication: INFECTION PROPHYLAXIS
     Route: 042
     Dates: start: 20090106, end: 20090110
  3. AMLODINE [Concomitant]
     Indication: DRUG USE FOR UNKNOWN INDICATION
     Dates: end: 20090120
  4. TANATRIL [Concomitant]
     Indication: DRUG USE FOR UNKNOWN INDICATION
     Dates: end: 20090120
  5. GASTER [Concomitant]
     Indication: DRUG USE FOR UNKNOWN INDICATION
  6. FERROMIA [Concomitant]
     Indication: DRUG USE FOR UNKNOWN INDICATION

REACTIONS (2)
  - PSEUDOMEMBRANOUS COLITIS [None]
  - THIRST [None]
